FAERS Safety Report 9221694 (Version 2)
Quarter: 2013Q2

REPORT INFORMATION
  Report Type: Spontaneous
  Country: US (occurrence: US)
  Receive Date: 20130410
  Receipt Date: 20130429
  Transmission Date: 20140414
  Serious: Yes (Hospitalization)
  Sender: FDA-Public Use
  Company Number: US-SANOFI-AVENTIS-2013SA036475

PATIENT
  Age: 71 Year
  Sex: Male
  Weight: 169.7 kg

DRUGS (19)
  1. DDAVP [Suspect]
     Indication: HAEMORRHAGE
     Dates: start: 20130331, end: 20130331
  2. TYLENOL [Concomitant]
     Dosage: EVERY SIX HOURS
  3. ALLOPURINOL [Concomitant]
  4. AMLODIPINE [Concomitant]
  5. ARTIFICIAL TEARS [Concomitant]
  6. ASPIRIN [Concomitant]
  7. B COMPLEX [Concomitant]
  8. DULCOLAX [Concomitant]
  9. TUMS [Concomitant]
     Dosage: EVERY FOUR HOURS
  10. CILOSTAZOL [Concomitant]
  11. DOCUSATE [Concomitant]
  12. NEXIUM [Concomitant]
  13. NORCO [Concomitant]
  14. LANTUS [Concomitant]
     Dosage: DOSE:4 UNIT(S)
  15. HUMALOG [Concomitant]
  16. REGLAN [Concomitant]
  17. GLYCERYL TRINITRATE [Concomitant]
     Dosage: DOSE:0.4 UNIT(S)
  18. SEVELAMER [Concomitant]
  19. WARFARIN [Concomitant]

REACTIONS (5)
  - Angioedema [Recovered/Resolved]
  - Swelling face [Recovered/Resolved]
  - Throat tightness [Recovered/Resolved]
  - Anaphylactic reaction [Recovered/Resolved]
  - Cough [Recovered/Resolved]
